FAERS Safety Report 10047129 (Version 2)
Quarter: 2014Q2

REPORT INFORMATION
  Report Type: Spontaneous
  Country: US (occurrence: US)
  Receive Date: 20140331
  Receipt Date: 20140409
  Transmission Date: 20141212
  Serious: No
  Sender: FDA-Public Use
  Company Number: US-009507513-1403USA013046

PATIENT
  Age: 73 Year
  Sex: Male

DRUGS (1)
  1. COSOPT PF [Suspect]
     Dosage: ONE DROP IN EACH EYE TEICE A DAY
     Route: 047
     Dates: start: 20140325

REACTIONS (5)
  - Eye irritation [Recovered/Resolved]
  - Eye irritation [Recovered/Resolved]
  - Eye irritation [Recovered/Resolved]
  - Drug dose omission [Unknown]
  - Product quality issue [Unknown]
